FAERS Safety Report 7292472-2 (Version None)
Quarter: 2011Q1

REPORT INFORMATION
  Report Type: 
  Country: None (occurrence: None)
  Receive Date: 20110215
  Receipt Date: 20110209
  Transmission Date: 20110831
  Serious: Yes (Other)
  Sender: FDA-Public Use
  Company Number: US-PFIZER INC-2010070220

PATIENT
  Sex: Male
  Weight: 87.075 kg

DRUGS (8)
  1. CHANTIX [Suspect]
     Dosage: 1 MG, 2X/DAY
     Route: 048
     Dates: start: 20100401
  2. LOVAZA [Concomitant]
     Dosage: UNK
  3. CARVEDILOL [Concomitant]
     Indication: HYPERTENSION
     Dosage: 25 MG, 2X/DAY
  4. PRISTIQ [Suspect]
     Indication: DEPRESSION
     Dosage: 50 MG, DAILY
     Route: 048
     Dates: start: 20090101, end: 20100401
  5. PRISTIQ [Suspect]
     Dosage: ^BEGAN SPLITTING A 100 MG^
     Route: 048
     Dates: start: 20100401
  6. CHANTIX [Suspect]
     Indication: SMOKING CESSATION THERAPY
     Dosage: 1 MG, 2X/DAY
     Route: 048
     Dates: start: 20080101, end: 20090101
  7. ACETYLSALICYLIC ACID [Concomitant]
     Dosage: 81 MG, DAILY
  8. FENOFIBRATE [Concomitant]
     Dosage: 160 MG, DAILY

REACTIONS (5)
  - LETHARGY [None]
  - FATIGUE [None]
  - DEPRESSION [None]
  - BLOOD TRIGLYCERIDES INCREASED [None]
  - SENSATION OF FOREIGN BODY [None]
